FAERS Safety Report 17463317 (Version 3)
Quarter: 2020Q2

REPORT INFORMATION
  Report Type: Spontaneous
  Country: IE (occurrence: IE)
  Receive Date: 20200226
  Receipt Date: 20200424
  Transmission Date: 20200713
  Serious: Yes (Other)
  Sender: FDA-Public Use
  Company Number: IE-PFIZER INC-2020081512

PATIENT
  Sex: Female

DRUGS (1)
  1. AMLODIPINE [Suspect]
     Active Substance: AMLODIPINE BESYLATE
     Indication: BLOOD PRESSURE MEASUREMENT
     Dosage: 5 MG, DAILY
     Route: 048

REACTIONS (5)
  - Choking [Recovered/Resolved]
  - Accidental exposure to product packaging [Unknown]
  - Foreign body in throat [Recovered/Resolved]
  - Dysphagia [Recovered/Resolved]
  - Product packaging issue [Unknown]
